FAERS Safety Report 6245370-7 (Version None)
Quarter: 2009Q2

REPORT INFORMATION
  Report Type: 
  Country: None (occurrence: None)
  Receive Date: 20090625
  Receipt Date: 20090619
  Transmission Date: 20091009
  Serious: Yes (Hospitalization)
  Sender: FDA-Public Use
  Company Number: DE-B.I. PHARMACEUTICALS,INC./RIDGEFIELD-2009-DE-04408DE

PATIENT
  Sex: Male

DRUGS (2)
  1. SIFROL [Suspect]
     Indication: PARKINSON'S DISEASE
     Dosage: 2 ANZ
     Route: 048
     Dates: start: 20090615
  2. KEPPRA [Concomitant]
     Indication: EPILEPSY
     Dosage: 2 ANZ
     Route: 048
     Dates: start: 20090113

REACTIONS (3)
  - MENTAL DISORDER [None]
  - PRESYNCOPE [None]
  - TREMOR [None]
